FAERS Safety Report 8277483-2 (Version None)
Quarter: 2012Q2

REPORT INFORMATION
  Report Type: 
  Country: None (occurrence: None)
  Receive Date: 20120412
  Receipt Date: 20120408
  Transmission Date: 20120825
  Serious: Yes (Other)
  Sender: FDA-Public Use
  Company Number: PHHY2012TR030074

PATIENT
  Age: 61 Year
  Sex: Female

DRUGS (3)
  1. FUROSEMIDE [Suspect]
     Dosage: 20 MG, UNK
  2. LISINOPRIL [Concomitant]
     Dosage: 20 MG, UNK
     Route: 048
  3. CARVEDILOL [Concomitant]
     Dosage: 6.25 MG, UNK

REACTIONS (9)
  - HYPOKALAEMIA [None]
  - ANAEMIA [None]
  - MYDRIASIS [None]
  - CARDIAC ARREST [None]
  - DIARRHOEA [None]
  - CIRCULATORY COLLAPSE [None]
  - COMA SCALE ABNORMAL [None]
  - VENTRICULAR FIBRILLATION [None]
  - BLOOD MAGNESIUM DECREASED [None]
